FAERS Safety Report 23907059 (Version 1)
Quarter: 2024Q2

REPORT INFORMATION
  Report Type: Spontaneous
  Country: FR (occurrence: FR)
  Receive Date: 20240528
  Receipt Date: 20240528
  Transmission Date: 20240716
  Serious: Yes (Other)
  Sender: FDA-Public Use
  Company Number: FR-SUN PHARMACEUTICAL INDUSTRIES LTD-2024RR-448585

PATIENT
  Age: 53 Year
  Sex: Male
  Weight: 66 kg

DRUGS (7)
  1. PANTOPRAZOLE [Suspect]
     Active Substance: PANTOPRAZOLE
     Indication: Product used for unknown indication
     Dosage: 20 MILLIGRAM, DAILY
     Route: 040
     Dates: start: 20240119, end: 20240130
  2. MORPHINE [Suspect]
     Active Substance: MORPHINE
     Indication: Pain
     Dosage: 204 MILLIGRAM, DAILY
     Route: 040
     Dates: start: 20240125, end: 20240130
  3. OXAZEPAM [Suspect]
     Active Substance: OXAZEPAM
     Indication: Anxiety
     Dosage: 20 MILLIGRAM, DAILY
     Route: 048
     Dates: start: 20240125, end: 20240130
  4. CLOXACILLIN [Suspect]
     Active Substance: CLOXACILLIN
     Indication: Endocarditis
     Dosage: 13200 MILLIGRAM, DAILY
     Route: 040
     Dates: start: 20240119, end: 20240130
  5. LOVENOX [Suspect]
     Active Substance: ENOXAPARIN SODIUM
     Indication: Thrombosis prophylaxis
     Dosage: 4000 INTERNATIONAL UNIT, DAILY
     Route: 058
     Dates: start: 20240125, end: 20240130
  6. ACETAMINOPHEN [Concomitant]
     Active Substance: ACETAMINOPHEN
     Indication: Product used for unknown indication
     Dosage: UNK
     Route: 065
  7. FOLIC ACID [Concomitant]
     Active Substance: FOLIC ACID
     Indication: Product used for unknown indication
     Dosage: UNK
     Route: 065

REACTIONS (1)
  - Rash maculo-papular [Recovered/Resolved]

NARRATIVE: CASE EVENT DATE: 20240128
